FAERS Safety Report 5597864-5 (Version None)
Quarter: 2007Q4

REPORT INFORMATION
  Report Type: 
  Country: None (occurrence: None)
  Receive Date: 20071221
  Receipt Date: 20070904
  Transmission Date: 20080405
  Serious: Yes (Other)
  Sender: FDA-Public Use
  Company Number: US200709000724

PATIENT
  Age: 59 Year
  Sex: Female

DRUGS (1)
  1. HUMULIN R [Suspect]
     Dosage: 20 U. 2/D, 15 U,

REACTIONS (10)
  - BLOOD GLUCOSE DECREASED [None]
  - DIARRHOEA [None]
  - FUNGAL INFECTION [None]
  - GASTROINTESTINAL DISORDER [None]
  - HYPERSOMNIA [None]
  - INSULIN RESISTANCE [None]
  - LOCALISED INFECTION [None]
  - LOSS OF CONSCIOUSNESS [None]
  - MALAISE [None]
  - WEIGHT LOSS DIET [None]
